FAERS Safety Report 16961792 (Version 1)
Quarter: 2019Q4

REPORT INFORMATION
  Report Type: Spontaneous
  Country: DE (occurrence: DE)
  Receive Date: 20191025
  Receipt Date: 20191025
  Transmission Date: 20200122
  Serious: Yes (Other)
  Sender: FDA-Public Use
  Company Number: DE-PFIZER INC-2019457339

PATIENT
  Age: 89 Year
  Sex: Female
  Weight: 65 kg

DRUGS (8)
  1. VALSARTAN. [Concomitant]
     Active Substance: VALSARTAN
     Dosage: UNK
  2. FUROSEMID [Concomitant]
     Active Substance: FUROSEMIDE
     Dosage: UNK
  3. LOVASTATIN. [Concomitant]
     Active Substance: LOVASTATIN
     Dosage: UNK
  4. ALLOPURINOL. [Concomitant]
     Active Substance: ALLOPURINOL
     Dosage: UNK
  5. ASS 100 [Concomitant]
     Active Substance: ASPIRIN
     Dosage: UNK
  6. METOPROLOL. [Concomitant]
     Active Substance: METOPROLOL
     Dosage: UNK
  7. LATANOPROST PFIZER [Suspect]
     Active Substance: LATANOPROST
     Indication: GLAUCOMA
     Dosage: 1 GTT, 1X/DAY; 1 DROP PER EYE IN THE EVENING; INGESTED 10 YEARS AGO
     Route: 047
  8. NISITA [Concomitant]
     Dosage: UNK; OCCASIONAL APPLICATION
     Route: 045

REACTIONS (2)
  - Rhinalgia [Recovering/Resolving]
  - Purulence [Recovering/Resolving]
